FAERS Safety Report 7967751-3 (Version None)
Quarter: 2011Q4

REPORT INFORMATION
  Report Type: 
  Country: None (occurrence: None)
  Receive Date: 20111122
  Receipt Date: 20110715
  Transmission Date: 20120403
  Serious: No
  Sender: FDA-Public Use
  Company Number: PHHY2011US54698

PATIENT
  Age: 60 Year
  Sex: Female
  Weight: 72.6 kg

DRUGS (13)
  1. GILENYA [Suspect]
     Indication: MULTIPLE SCLEROSIS
     Dosage: 0.5MG, DAILY, ORAL
     Route: 048
     Dates: start: 20110605, end: 20110617
  2. OMEPRAZOLE [Concomitant]
  3. ASPIRIN [Concomitant]
  4. TIZANIDINE HCL [Concomitant]
  5. DICYCLOMINE [Concomitant]
  6. LORTAB (HYDROCODONE BITARTRATE, PARACEMATOL) [Concomitant]
  7. CLONIDINE [Concomitant]
  8. TOPROL-XL [Concomitant]
  9. OXYCONTIN [Concomitant]
  10. ADDERALL 10 [Concomitant]
  11. AMANADINE (AMANTADINE) [Concomitant]
  12. NAMENDA [Concomitant]
  13. CYMBALTA [Concomitant]

REACTIONS (1)
  - VERTIGO [None]
